FAERS Safety Report 9994073 (Version 2)
Quarter: 2014Q1

REPORT INFORMATION
  Report Type: Spontaneous
  Country: US (occurrence: US)
  Receive Date: 20140310
  Receipt Date: 20140310
  Transmission Date: 20141002
  Serious: No
  Sender: FDA-Public Use
  Company Number: US-AMGEN-USASP2013073591

PATIENT
  Age: 79 Year
  Sex: Female

DRUGS (11)
  1. SENSIPAR [Suspect]
     Indication: HYPERPARATHYROIDISM
     Dosage: 30 MG, 5 TIMES/WK
     Route: 065
     Dates: start: 20131214
  2. QUINAPRIL [Concomitant]
     Route: 065
  3. XARELTO [Concomitant]
     Indication: ANTICOAGULANT THERAPY
     Route: 065
  4. SPIRONOLACTONE [Concomitant]
     Route: 065
  5. DYAZIDE [Concomitant]
     Route: 065
  6. COENZYME Q10 [Concomitant]
     Dosage: 400 MG, UNK
     Route: 065
  7. SIMVASTATIN [Concomitant]
     Route: 065
  8. OMEGA 3-6-9                        /01333901/ [Concomitant]
     Route: 065
  9. ASPIRIN [Concomitant]
     Dosage: 81 MG, UNK
     Route: 065
  10. MAGNESIUM OXIDE [Concomitant]
     Route: 065
  11. NEXIUM                             /01479302/ [Concomitant]
     Route: 065

REACTIONS (2)
  - Alopecia [Unknown]
  - Muscle spasms [Recovering/Resolving]
